FAERS Safety Report 4739311-9 (Version None)
Quarter: 2005Q3

REPORT INFORMATION
  Report Type: 
  Country: None (occurrence: None)
  Receive Date: 20050810
  Receipt Date: 20050117
  Transmission Date: 20060218
  Serious: No
  Sender: FDA-Public Use
  Company Number: US-GLAXOSMITHKLINE-A0540962A

PATIENT
  Sex: Male

DRUGS (2)
  1. PAXIL [Suspect]
  2. ALCOHOL [Suspect]

REACTIONS (3)
  - AGGRESSION [None]
  - ANGER [None]
  - MOOD ALTERED [None]
